FAERS Safety Report 4898124-8 (Version None)
Quarter: 2006Q1

REPORT INFORMATION
  Report Type: 
  Country: None (occurrence: None)
  Receive Date: 20060130
  Receipt Date: 20060119
  Transmission Date: 20060701
  Serious: Yes (Hospitalization)
  Sender: FDA-Public Use
  Company Number: 221270

PATIENT
  Age: 6 Year
  Sex: Male

DRUGS (3)
  1. NUTROPIN AQ [Suspect]
     Indication: RENAL FAILURE
     Dosage: 1, QD, SUBCUTANEOUS
     Route: 058
     Dates: start: 20010920, end: 20051215
  2. ANTIHYPERTENSIVES (ANTIHYPERTENSIVE NOS) [Concomitant]
  3. RENAGEL [Concomitant]

REACTIONS (3)
  - HYPERTENSION [None]
  - INTRACRANIAL PRESSURE INCREASED [None]
  - PAPILLOEDEMA [None]
